FAERS Safety Report 7221216-5 (Version None)
Quarter: 2011Q1

REPORT INFORMATION
  Report Type: 
  Country: None (occurrence: None)
  Receive Date: 20110112
  Receipt Date: 20110110
  Transmission Date: 20110831
  Serious: Yes (Hospitalization)
  Sender: FDA-Public Use
  Company Number: GB-ABBOTT-11P-167-0696347-00

PATIENT
  Age: 51 Year
  Sex: Male
  Weight: 74.5 kg

DRUGS (5)
  1. RITONAVIR [Suspect]
     Indication: HIV INFECTION
     Dates: start: 20060101
  2. ATAZANAVIR [Suspect]
     Indication: HIV INFECTION
     Route: 048
     Dates: start: 20060101
  3. CALCICHEW D3 [Suspect]
     Indication: VITAMIN D DEFICIENCY
     Route: 048
     Dates: start: 20090101
  4. LAMIVUDINE [Concomitant]
     Indication: HIV INFECTION
     Dates: start: 20060101
  5. ZOLEDRONIC ACID [Concomitant]
     Indication: OSTEOPOROSIS

REACTIONS (1)
  - NEPHROLITHIASIS [None]
